FAERS Safety Report 9656042 (Version 4)
Quarter: 2014Q2

REPORT INFORMATION
  Report Type: Spontaneous
  Country: US (occurrence: US)
  Receive Date: 20131030
  Receipt Date: 20140523
  Transmission Date: 20141212
  Serious: Yes (Other)
  Sender: FDA-Public Use
  Company Number: US-JNJFOC-20131014108

PATIENT
  Age: 37 Year
  Sex: Female
  Weight: 61.69 kg

DRUGS (15)
  1. DURAGESIC [Suspect]
     Indication: PRODUCT USED FOR UNKNOWN INDICATION
     Route: 062
     Dates: start: 2010
  2. DURAGESIC [Suspect]
     Indication: PRODUCT USED FOR UNKNOWN INDICATION
     Route: 062
     Dates: start: 2012
  3. DURAGESIC [Suspect]
     Indication: PRODUCT USED FOR UNKNOWN INDICATION
     Route: 062
  4. DURAGESIC [Suspect]
     Indication: PRODUCT USED FOR UNKNOWN INDICATION
     Route: 062
  5. DURAGESIC [Suspect]
     Indication: PRODUCT USED FOR UNKNOWN INDICATION
     Route: 062
  6. DURAGESIC [Suspect]
     Indication: PRODUCT USED FOR UNKNOWN INDICATION
     Route: 062
     Dates: start: 2010
  7. DURAGESIC [Suspect]
     Indication: PRODUCT USED FOR UNKNOWN INDICATION
     Route: 062
     Dates: start: 2011, end: 2012
  8. UNSPECIFIED GENERIC FENTANYL [Suspect]
     Indication: PRODUCT USED FOR UNKNOWN INDICATION
     Route: 062
  9. MYLAN FENTANYL TRANSDERMAL SYSTEM [Suspect]
     Indication: PRODUCT USED FOR UNKNOWN INDICATION
     Route: 062
  10. FENTANYL TRANSDERMAL SYSTEM [Suspect]
     Indication: PRODUCT USED FOR UNKNOWN INDICATION
     Route: 062
  11. OXYCODONE [Concomitant]
     Indication: BREAKTHROUGH PAIN
     Route: 065
  12. CYMBALTA [Concomitant]
     Indication: DEPRESSION
     Route: 048
     Dates: start: 201401
  13. CYMBALTA [Concomitant]
     Indication: PAIN
     Route: 048
     Dates: start: 201401
  14. KLONOPIN [Concomitant]
     Indication: POST-TRAUMATIC STRESS DISORDER
     Dosage: AT NIGHT AS NEEDED
     Route: 048
  15. KLONOPIN [Concomitant]
     Indication: SOMNOLENCE
     Dosage: AT NIGHT AS NEEDED
     Route: 048

REACTIONS (23)
  - Abscess [Unknown]
  - Nephrolithiasis [Unknown]
  - Drug prescribing error [Unknown]
  - Product quality issue [Unknown]
  - Dermatitis allergic [Unknown]
  - Exposure during pregnancy [Recovered/Resolved]
  - Drug ineffective [Unknown]
  - Product quality issue [Unknown]
  - Nausea [Unknown]
  - Anxiety [Unknown]
  - Product quality issue [Unknown]
  - Wrong technique in drug usage process [Unknown]
  - Nicotine dependence [Unknown]
  - Malaise [Unknown]
  - Hyperhidrosis [Unknown]
  - Product quality issue [Unknown]
  - Feeling hot [Unknown]
  - Drug dose omission [Unknown]
  - Application site discolouration [Unknown]
  - Wrong technique in drug usage process [Unknown]
  - Application site erythema [Unknown]
  - Rash [Unknown]
  - Therapy cessation [Unknown]
